FAERS Safety Report 4833734-5 (Version None)
Quarter: 2005Q4

REPORT INFORMATION
  Report Type: 
  Country: None (occurrence: None)
  Receive Date: 20051114
  Receipt Date: 20051102
  Transmission Date: 20060501
  Serious: Yes (Death)
  Sender: FDA-Public Use
  Company Number: US-2005-016140

PATIENT
  Age: 62 Year
  Sex: Female

DRUGS (1)
  1. BETASERON [Suspect]
     Indication: MULTIPLE SCLEROSIS
     Dosage: SUBCUTANEOUS
     Route: 058
     Dates: end: 20050401

REACTIONS (5)
  - LUNG NEOPLASM MALIGNANT [None]
  - METASTATIC NEOPLASM [None]
  - MULTIPLE SCLEROSIS [None]
  - PNEUMONIA [None]
  - SARCOMA [None]
